FAERS Safety Report 5574393-6 (Version None)
Quarter: 2007Q4

REPORT INFORMATION
  Report Type: 
  Country: None (occurrence: None)
  Receive Date: 20071227
  Receipt Date: 20071220
  Transmission Date: 20080405
  Serious: Yes (Other)
  Sender: FDA-Public Use
  Company Number: CH-JNJFOC-20071106044

PATIENT
  Sex: Female
  Weight: 55 kg

DRUGS (1)
  1. ORTHO EVRA [Suspect]
     Indication: CONTRACEPTION
     Route: 062

REACTIONS (5)
  - AFFECT LABILITY [None]
  - BREAST DISCOMFORT [None]
  - BREAST MASS [None]
  - HAEMORRHAGIC DISORDER [None]
  - METRORRHAGIA [None]
